FAERS Safety Report 11308242 (Version 1)
Quarter: 2015Q3

REPORT INFORMATION
  Report Type: Spontaneous
  Country: CH (occurrence: CH)
  Receive Date: 20150724
  Receipt Date: 20150724
  Transmission Date: 20151125
  Serious: Yes (Life-Threatening, Hospitalization)
  Sender: FDA-Public Use
  Company Number: CH-SA-2015SA105671

PATIENT
  Age: 56 Year
  Sex: Male
  Weight: 96 kg

DRUGS (16)
  1. LIQUEMIN /SCH/ [Interacting]
     Active Substance: HEPARIN SODIUM
     Indication: THROMBOSIS PROPHYLAXIS
     Route: 041
     Dates: start: 20150513, end: 20150515
  2. SIMVASTATIN. [Concomitant]
     Active Substance: SIMVASTATIN
     Dates: start: 201505
  3. TRAMADOL. [Concomitant]
     Active Substance: TRAMADOL
     Dates: start: 201505
  4. ZYLORIC [Concomitant]
     Active Substance: ALLOPURINOL
  5. CLEXANE [Suspect]
     Active Substance: ENOXAPARIN SODIUM
     Indication: THROMBOSIS PROPHYLAXIS
     Route: 058
     Dates: start: 20150516, end: 20150523
  6. BELOC [Concomitant]
     Active Substance: METOPROLOL TARTRATE
     Dates: start: 201505
  7. INEGY [Concomitant]
     Active Substance: EZETIMIBE\SIMVASTATIN
  8. CALCIMAGON [Concomitant]
     Active Substance: CALCIUM
     Route: 048
     Dates: start: 201505
  9. ASPIRIN. [Concomitant]
     Active Substance: ASPIRIN
     Dates: end: 20150523
  10. PANTOZOL [Concomitant]
     Active Substance: PANTOPRAZOLE SODIUM
     Dates: start: 201505
  11. DAFALGAN [Concomitant]
     Active Substance: ACETAMINOPHEN
     Dates: start: 201505
  12. ACTRAPID [Concomitant]
     Active Substance: INSULIN HUMAN
     Dates: start: 201505
  13. JANUVIA [Concomitant]
     Active Substance: SITAGLIPTIN PHOSPHATE
  14. METFORMIN [Concomitant]
     Active Substance: METFORMIN HYDROCHLORIDE
  15. DUOFER [Concomitant]
     Dates: start: 201505
  16. NITROGLYCERINE [Concomitant]
     Active Substance: NITROGLYCERIN

REACTIONS (6)
  - Drug interaction [Unknown]
  - Heparin-induced thrombocytopenia [Recovering/Resolving]
  - Haematochezia [Recovered/Resolved]
  - Peripheral artery thrombosis [Recovering/Resolving]
  - Gastrointestinal necrosis [Recovered/Resolved]
  - Venous thrombosis [Unknown]

NARRATIVE: CASE EVENT DATE: 20150523
